FAERS Safety Report 5579159-9 (Version None)
Quarter: 2008Q1

REPORT INFORMATION
  Report Type: 
  Country: None (occurrence: None)
  Receive Date: 20080102
  Receipt Date: 20071219
  Transmission Date: 20080703
  Serious: Yes (Hospitalization)
  Sender: FDA-Public Use
  Company Number: FR-AMGEN-US250210

PATIENT
  Age: 80 Year
  Sex: Female

DRUGS (12)
  1. ENBREL [Suspect]
     Indication: RHEUMATOID ARTHRITIS
     Dosage: UNKNOWN DOSE
     Route: 058
     Dates: start: 20070101, end: 20070901
  2. NOVATREX [Suspect]
     Indication: RHEUMATOID ARTHRITIS
     Dosage: 2.5 MG TOTAL WEEKLY
     Route: 048
  3. PLAVIX [Concomitant]
     Dosage: UNKNOWN DOSE
     Dates: end: 20070901
  4. ATACAND [Concomitant]
     Dosage: UNKNOWN DOSE
  5. HYPERIUM [Concomitant]
     Dosage: UNKNOWN DOSE
  6. INDAPAMIDE [Concomitant]
     Dosage: UNKNOWN DOSE
  7. RIVOTRIL [Concomitant]
     Dosage: UNKNOWN DOSE
  8. DEPAMIDE [Concomitant]
     Dosage: UNKNOWN DOSE
  9. DEROXAT [Concomitant]
     Dosage: UNKNOWN DOSE
  10. L-THYROXIN [Concomitant]
     Dosage: UNKNOWN DOSE
  11. CORTANCYL [Concomitant]
     Dosage: UNKNOWN DOSE
  12. NEURONTIN [Concomitant]
     Dosage: UNKNOWN DOSE

REACTIONS (7)
  - ATRIAL FIBRILLATION [None]
  - BRAIN INJURY [None]
  - CEREBRAL ATROPHY [None]
  - COLITIS ISCHAEMIC [None]
  - HEMIPLEGIA [None]
  - MALAISE [None]
  - TRANSIENT ISCHAEMIC ATTACK [None]
